FAERS Safety Report 12957718 (Version 2)
Quarter: 2016Q4

REPORT INFORMATION
  Report Type: Spontaneous
  Country: US (occurrence: US)
  Receive Date: 20161118
  Receipt Date: 20161222
  Transmission Date: 20170207
  Serious: Yes (Other)
  Sender: FDA-Public Use
  Company Number: GXBR2016US003410

PATIENT
  Age: 71 Year
  Sex: Female
  Weight: 82.54 kg

DRUGS (3)
  1. ATENOLOL TABLETS USP [Suspect]
     Active Substance: ATENOLOL
     Indication: BLOOD PRESSURE MEASUREMENT
     Dosage: 25 MG, QD
     Route: 048
  2. ZETIA [Concomitant]
     Active Substance: EZETIMIBE
     Indication: BLOOD CHOLESTEROL
     Dosage: UNK DF, UNK
     Route: 065
  3. ATENOLOL TABLETS USP [Suspect]
     Active Substance: ATENOLOL
     Dosage: 25 MG, BID
     Route: 048

REACTIONS (26)
  - Headache [Unknown]
  - Skin texture abnormal [Not Recovered/Not Resolved]
  - Bradycardia [Unknown]
  - Weight loss poor [Not Recovered/Not Resolved]
  - Oedema genital [Recovered/Resolved]
  - High density lipoprotein decreased [Recovering/Resolving]
  - Hyperhidrosis [Recovered/Resolved]
  - Malaise [Unknown]
  - Dysarthria [Unknown]
  - Confusional state [Unknown]
  - Depression [Unknown]
  - Lethargy [Unknown]
  - Hypotension [Recovered/Resolved]
  - Rash [Not Recovered/Not Resolved]
  - Pruritus [Not Recovered/Not Resolved]
  - Sleep disorder due to general medical condition, insomnia type [Not Recovered/Not Resolved]
  - Pharyngitis streptococcal [Unknown]
  - Urticaria [Unknown]
  - Glucose tolerance impaired [Not Recovered/Not Resolved]
  - Agitation [Unknown]
  - Autoimmune disorder [Recovered/Resolved]
  - Hypertension [Not Recovered/Not Resolved]
  - Psoriasis [Not Recovered/Not Resolved]
  - Dry mouth [Unknown]
  - Weight decreased [Recovered/Resolved]
  - Vulvovaginal disorder [Recovered/Resolved]

NARRATIVE: CASE EVENT DATE: 2013
